FAERS Safety Report 8127915-5 (Version None)
Quarter: 2011Q4

REPORT INFORMATION
  Report Type: 
  Country: None (occurrence: None)
  Receive Date: 20111230
  Receipt Date: 20111011
  Transmission Date: 20120403
  Serious: Yes (Other)
  Sender: FDA-Public Use
  Company Number: 300091USA

PATIENT
  Age: 49 Year
  Sex: Female
  Weight: 56.6996 kg

DRUGS (5)
  1. LEVOTHYROXINE SODIUM [Concomitant]
  2. CLINDAMYCIN [Suspect]
     Indication: INFECTION PARASITIC
     Dosage: 1800 MG (300 MG, 2 IN 8 HR), ORAL
     Route: 048
     Dates: start: 20110902
  3. QUALAQUIN [Suspect]
     Indication: INFECTION PARASITIC
     Dosage: 1944 MG (324 MG, 2 IN 8 HR)
     Dates: start: 20110907, end: 20110908
  4. ATENOLOL [Concomitant]
  5. AZITHROMYCIN [Suspect]
     Indication: INFECTION PARASITIC
     Dosage: 250 MG (250 MG, 1 IN 1 D), ORAL
     Route: 048
     Dates: start: 20110829, end: 20110906

REACTIONS (3)
  - TINNITUS [None]
  - DEAFNESS [None]
  - HYPOACUSIS [None]
